FAERS Safety Report 9883312 (Version 1)
Quarter: 2014Q1

REPORT INFORMATION
  Report Type: Spontaneous
  Country: BR (occurrence: BR)
  Receive Date: 20140210
  Receipt Date: 20140210
  Transmission Date: 20141002
  Serious: Yes (Hospitalization, Other)
  Sender: FDA-Public Use
  Company Number: BR-AMGEN-BRASP2014008911

PATIENT
  Age: 74 Year
  Sex: Female
  Weight: 57 kg

DRUGS (5)
  1. ENBREL [Suspect]
     Indication: RHEUMATOID ARTHRITIS
     Dosage: 50 MG, ONCE WEEKLY
     Route: 058
     Dates: start: 2011
  2. METHOTREXATE [Concomitant]
     Dosage: UNK
  3. NOVANLO [Concomitant]
     Dosage: UNK
  4. FOLIC ACID [Concomitant]
     Dosage: UNK
  5. CALTRATE 600 + D                       /00944201/ [Concomitant]
     Dosage: UNK

REACTIONS (4)
  - Cerebrovascular accident [Unknown]
  - Diabetes mellitus [Unknown]
  - Hypertension [Unknown]
  - Blood cholesterol abnormal [Unknown]
